FAERS Safety Report 10047875 (Version 2)
Quarter: 2014Q1

REPORT INFORMATION
  Report Type: Spontaneous
  Country: PT (occurrence: PT)
  Receive Date: 20140331
  Receipt Date: 20140331
  Transmission Date: 20141002
  Serious: Yes (Other)
  Sender: FDA-Public Use
  Company Number: PT-WATSON-2014-01229

PATIENT
  Age: 58 Year
  Sex: Female
  Weight: 60 kg

DRUGS (2)
  1. RISPERIDONA ACTAVIS [Suspect]
     Indication: SCHIZOPHRENIA
     Dosage: 9 MG, DAILY
     Route: 048
     Dates: start: 20131107, end: 20131209
  2. RISPERDAL CONSTA [Suspect]
     Indication: SCHIZOPHRENIA
     Dosage: UNK
     Route: 030

REACTIONS (5)
  - Psychomotor retardation [Recovering/Resolving]
  - Cogwheel rigidity [Recovering/Resolving]
  - Amimia [Recovering/Resolving]
  - Corneal reflex decreased [Recovering/Resolving]
  - Drug ineffective [Recovering/Resolving]
